FAERS Safety Report 5373218-1 (Version None)
Quarter: 2007Q2

REPORT INFORMATION
  Report Type: 
  Country: None (occurrence: None)
  Receive Date: 20070628
  Receipt Date: 20070620
  Transmission Date: 20071010
  Serious: Yes (Other)
  Sender: FDA-Public Use
  Company Number: PHEH2007US06505

PATIENT
  Age: 65 Year

DRUGS (1)
  1. ZELNORM [Suspect]

REACTIONS (1)
  - ARRHYTHMIA [None]
